FAERS Safety Report 5897206-1 (Version None)
Quarter: 2008Q3

REPORT INFORMATION
  Report Type: 
  Country: None (occurrence: None)
  Receive Date: 20080923
  Receipt Date: 20080911
  Transmission Date: 20090109
  Serious: Yes (Other)
  Sender: FDA-Public Use
  Company Number: SPV1-2008-01968

PATIENT

DRUGS (1)
  1. VYVANSE [Suspect]

REACTIONS (1)
  - SUICIDAL IDEATION [None]
